FAERS Safety Report 5097403-1 (Version None)
Quarter: 2006Q3

REPORT INFORMATION
  Report Type: 
  Country: None (occurrence: None)
  Receive Date: 20060901
  Receipt Date: 20060816
  Transmission Date: 20061208
  Serious: Yes (Life-Threatening, Hospitalization)
  Sender: FDA-Public Use
  Company Number: 2006RR-03505

PATIENT
  Age: 60 Year
  Sex: Female

DRUGS (6)
  1. CITALOPRAM FAMILY (CITALOPRAM) TABLET, 20MG [Suspect]
     Indication: DEPRESSION
     Dosage: 20 MG, QD, ORAL
     Route: 048
  2. LISINOPRIL [Suspect]
     Indication: HYPERTENSION
     Dosage: 10 MG, QD, ORAL
     Route: 048
     Dates: end: 20060614
  3. AMITRIPTYLINE FAMILY (AMITRIPTYLINE) TABLET, 25 MG [Concomitant]
  4. ATORVASTATIN CALCIUM [Concomitant]
  5. BENDROFLUAZIDE (BENDROFLUMETHIAZIDE) [Concomitant]
  6. PROPRANOLOL [Concomitant]

REACTIONS (2)
  - ANGIONEUROTIC OEDEMA [None]
  - SWELLING FACE [None]
